FAERS Safety Report 7553569-2 (Version None)
Quarter: 2011Q2

REPORT INFORMATION
  Report Type: 
  Country: None (occurrence: None)
  Receive Date: 20110609
  Receipt Date: 20110524
  Transmission Date: 20111010
  Serious: Yes (Other)
  Sender: FDA-Public Use
  Company Number: 935786

PATIENT
  Age: 42 Year
  Sex: Female

DRUGS (8)
  1. (GLYCOPYRROLATE /00196202/) [Concomitant]
  2. ONDANSETRON [Suspect]
     Indication: ANTIEMETIC SUPPORTIVE CARE
     Dosage: 8 MG MILLIGRAM(S), INTRAVENOUS
     Route: 042
     Dates: start: 20110405, end: 20110405
  3. ATRACURIUM BESYLATE [Concomitant]
  4. MORPHINE [Concomitant]
  5. PROPOFOL [Concomitant]
  6. (NEOSTIGIMINE) [Concomitant]
  7. ALFENTANIL [Concomitant]
  8. (MISAZOLAM) [Concomitant]

REACTIONS (7)
  - OXYGEN SATURATION DECREASED [None]
  - TREMOR [None]
  - UNRESPONSIVE TO STIMULI [None]
  - SOMNOLENCE [None]
  - NAUSEA [None]
  - GRAND MAL CONVULSION [None]
  - PANIC ATTACK [None]
